FAERS Safety Report 17735898 (Version 3)
Quarter: 2021Q1

REPORT INFORMATION
  Report Type: Spontaneous
  Country: US (occurrence: US)
  Receive Date: 20200501
  Receipt Date: 20210205
  Transmission Date: 20210419
  Serious: No
  Sender: FDA-Public Use
  Company Number: US-TEVA-2020-US-1229032

PATIENT
  Age: 39 Year
  Sex: Female

DRUGS (7)
  1. NALTREXONE [Concomitant]
     Active Substance: NALTREXONE
  2. COPAXONE [Suspect]
     Active Substance: GLATIRAMER ACETATE
     Indication: MULTIPLE SCLEROSIS
     Route: 058
     Dates: start: 20200417
  3. BACLOFEN. [Concomitant]
     Active Substance: BACLOFEN
  4. SOLIFENACIN [Concomitant]
     Active Substance: SOLIFENACIN
  5. VIT D [Concomitant]
     Active Substance: VITAMIN D NOS
  6. DULOXETINE. [Concomitant]
     Active Substance: DULOXETINE
  7. AMPYRA [Concomitant]
     Active Substance: DALFAMPRIDINE

REACTIONS (4)
  - Fatigue [Not Recovered/Not Resolved]
  - Myalgia [Not Recovered/Not Resolved]
  - Mobility decreased [Not Recovered/Not Resolved]
  - Arthralgia [Not Recovered/Not Resolved]

NARRATIVE: CASE EVENT DATE: 20200421
